FAERS Safety Report 18564194 (Version 1)
Quarter: 2020Q4

REPORT INFORMATION
  Report Type: Spontaneous
  Country: US (occurrence: US)
  Receive Date: 20201130
  Receipt Date: 20201130
  Transmission Date: 20210114
  Serious: Yes (Other)
  Sender: FDA-Public Use
  Company Number: None

PATIENT
  Age: 65 Year
  Sex: Male
  Weight: 69.75 kg

DRUGS (8)
  1. KAOPECTATE ORAL [Concomitant]
  2. ENSURE CLEAR ORAL [Concomitant]
  3. HYDROCHLOROTHIAZIDE 25MG ORAL [Concomitant]
  4. HYDROCODONE-ACETAMINOPHEN 10-325MG ORAL [Concomitant]
  5. LIDOCAINE-PRILOCAINE EXTERNAL [Concomitant]
  6. LISINPRIL 40MG [Concomitant]
  7. DEXAMETHASONE 2MG ORAL [Concomitant]
  8. INLYTA [Suspect]
     Active Substance: AXITINIB
     Indication: NEOPLASM MALIGNANT
     Route: 048
     Dates: start: 20201119

REACTIONS (1)
  - Diarrhoea [None]

NARRATIVE: CASE EVENT DATE: 20201130
